FAERS Safety Report 15918129 (Version 3)
Quarter: 2019Q1

REPORT INFORMATION
  Report Type: Spontaneous
  Country: BE (occurrence: BE)
  Receive Date: 20190205
  Receipt Date: 20190301
  Transmission Date: 20190417
  Serious: Yes (Hospitalization, Disabling, Congenital Anomaly, Other)
  Sender: FDA-Public Use
  Company Number: BE-SA-2019SA022759

PATIENT
  Age: 72 Year
  Sex: Female

DRUGS (13)
  1. LINEZOLID. [Suspect]
     Active Substance: LINEZOLID
     Indication: STAPHYLOCOCCAL INFECTION
     Dosage: UNK
     Route: 065
     Dates: start: 2000
  2. RIFAMPICIN [Suspect]
     Active Substance: RIFAMPIN
     Indication: STAPHYLOCOCCAL INFECTION
     Dosage: UNK
     Route: 065
     Dates: start: 2000
  3. CIPROFLOXACIN. [Suspect]
     Active Substance: CIPROFLOXACIN
     Indication: ESCHERICHIA INFECTION
     Dosage: UNK
     Route: 065
     Dates: start: 2000
  4. CITALOPRAM [Concomitant]
     Active Substance: CITALOPRAM HYDROBROMIDE
     Dosage: UNK
  5. TEICOPLANIN [Concomitant]
     Active Substance: TEICOPLANIN
     Indication: STAPHYLOCOCCAL INFECTION
     Dosage: 12 MG/KG, QD FOR THREE DAY (LOADING DOSE)
  6. LINEZOLID. [Suspect]
     Active Substance: LINEZOLID
     Dosage: 600 MG, 2X/DAY
     Dates: start: 20010126, end: 20011206
  7. SULFAMETHOXAZOLE/TRIMETHOPRIM [Suspect]
     Active Substance: SULFAMETHOXAZOLE\TRIMETHOPRIM
     Dosage: ?SUPPRESSIVE LIFELONG? THERAPY (160 MG/800 MG TWICE A DAY)
  8. CIPROFLOXACIN. [Suspect]
     Active Substance: CIPROFLOXACIN
     Dosage: 750 MG, 2X/DAY
     Route: 048
     Dates: start: 20010126, end: 20011204
  9. SULFAMETHOXAZOLE/TRIMETHOPRIM [Suspect]
     Active Substance: SULFAMETHOXAZOLE\TRIMETHOPRIM
     Indication: STAPHYLOCOCCAL INFECTION
     Dosage: TRIMETHOPRIM-SULFAMETHOXAZOLE AT A DOSE OF 15 AND 75 MG/KG/DAY, RESPECTIVELY
     Dates: start: 1999
  10. RIFAMPICIN [Suspect]
     Active Substance: RIFAMPIN
     Dosage: UNK
     Route: 048
     Dates: start: 20010126, end: 20011204
  11. INSULIN [Concomitant]
     Active Substance: INSULIN NOS
     Dosage: UNK
  12. LORMETAZEPAM [Concomitant]
     Active Substance: LORMETAZEPAM
     Dosage: UNK
  13. TEICOPLANIN [Concomitant]
     Active Substance: TEICOPLANIN
     Dosage: 6 MG/KG, QD TROUGH LEVEL BETWEEN 11 AND 16  ? G/DL

REACTIONS (6)
  - Ocular hypertension [Recovered/Resolved]
  - Visual acuity reduced [Recovered/Resolved with Sequelae]
  - Vision blurred [Recovered/Resolved with Sequelae]
  - Optic neuritis [Recovered/Resolved with Sequelae]
  - Hyperkalaemia [Unknown]
  - Gastrointestinal disorder [Unknown]
